FAERS Safety Report 10185759 (Version 1)
Quarter: 2014Q2

REPORT INFORMATION
  Report Type: Spontaneous
  Country: US (occurrence: None)
  Receive Date: 20140520
  Receipt Date: 20140520
  Transmission Date: 20141212
  Serious: Yes (Hospitalization)
  Sender: FDA-Public Use
  Company Number: None

PATIENT
  Age: 60 Year
  Sex: Female
  Weight: 82 kg

DRUGS (2)
  1. CYTARABINE [Suspect]
     Dates: end: 20140506
  2. DAUNORUBICIN [Suspect]
     Dates: end: 20140502

REACTIONS (12)
  - Pyrexia [None]
  - Constipation [None]
  - Nausea [None]
  - Diarrhoea [None]
  - Abdominal distension [None]
  - Neutropenic colitis [None]
  - Colitis [None]
  - Blood culture positive [None]
  - Candida infection [None]
  - Blood bilirubin increased [None]
  - Drug effect decreased [None]
  - Liver function test abnormal [None]
